FAERS Safety Report 4430819-2 (Version None)
Quarter: 2004Q3

REPORT INFORMATION
  Report Type: 
  Country: None (occurrence: None)
  Receive Date: 20040823
  Receipt Date: 20040811
  Transmission Date: 20050211
  Serious: Yes (Death, Hospitalization)
  Sender: FDA-Public Use
  Company Number: ES-AMGEN-UK086999

PATIENT
  Age: 75 Year
  Sex: Female

DRUGS (3)
  1. NEUPOGEN [Suspect]
     Indication: DRUG USE FOR UNKNOWN INDICATION
     Route: 058
     Dates: start: 20030925, end: 20030928
  2. LEFLUNOMIDE [Concomitant]
     Route: 048
     Dates: start: 20030601, end: 20030925
  3. METHOTREXATE [Concomitant]
     Dates: start: 19970101, end: 20030925

REACTIONS (1)
  - ACUTE RESPIRATORY DISTRESS SYNDROME [None]
